FAERS Safety Report 6581605-9 (Version None)
Quarter: 2010Q1

REPORT INFORMATION
  Report Type: 
  Country: None (occurrence: None)
  Receive Date: 20100211
  Receipt Date: 20100211
  Transmission Date: 20100710
  Serious: Yes (Life-Threatening)
  Sender: FDA-Public Use
  Company Number: None

PATIENT
  Sex: Male
  Weight: 100 kg

DRUGS (2)
  1. METHADONE HYDROCHLORIDE [Suspect]
     Indication: DRUG DEPENDENCE
     Dosage: 265/MG. DAILY ORAL CONCENTRATE; 130/MG DAILY ORAL OR 10/MG PILL FORM
     Route: 048
  2. METHADONE HYDROCHLORIDE [Suspect]
     Indication: PAIN
     Dosage: 265/MG. DAILY ORAL CONCENTRATE; 130/MG DAILY ORAL OR 10/MG PILL FORM
     Route: 048

REACTIONS (1)
  - NO ADVERSE EVENT [None]
